FAERS Safety Report 14009228 (Version 3)
Quarter: 2018Q2

REPORT INFORMATION
  Report Type: Report from Study
  Country: US (occurrence: US)
  Receive Date: 20170925
  Receipt Date: 20180406
  Transmission Date: 20180711
  Serious: Yes (Hospitalization)
  Sender: FDA-Public Use
  Company Number: US-ASTRAZENECA-2016SE47373

PATIENT
  Age: 24 Year
  Sex: Male
  Weight: 54.6 kg

DRUGS (12)
  1. MORPHINE SULFATE. [Concomitant]
     Active Substance: MORPHINE SULFATE
     Indication: PAIN
     Route: 065
     Dates: start: 201511
  2. TRIAMCINOLONE [Concomitant]
     Active Substance: TRIAMCINOLONE
     Indication: MUCOSAL INFLAMMATION
     Route: 065
     Dates: start: 20160213
  3. MEDI4736 [Suspect]
     Active Substance: DURVALUMAB
     Indication: SARCOMA METASTATIC
     Route: 042
     Dates: start: 20151125, end: 20160518
  4. ZOFRAN [Concomitant]
     Active Substance: ONDANSETRON HYDROCHLORIDE
     Indication: NAUSEA
     Route: 065
     Dates: start: 201511
  5. DIPHENHYDRAMINE. [Concomitant]
     Active Substance: DIPHENHYDRAMINE
     Indication: INFUSION RELATED REACTION
     Route: 065
     Dates: start: 20151125
  6. DIAZEPAM. [Concomitant]
     Active Substance: DIAZEPAM
     Indication: ANXIETY
     Route: 065
     Dates: start: 20160313
  7. NYSTATIN W/TRIAMCINOLONE [Concomitant]
     Indication: DERMATITIS
     Route: 065
     Dates: start: 20160119
  8. KW-0761 [Suspect]
     Active Substance: MOGAMULIZUMAB
     Indication: SARCOMA METASTATIC
     Route: 042
     Dates: start: 20151125, end: 20151216
  9. ACETAMINOPHEN. [Concomitant]
     Active Substance: ACETAMINOPHEN
     Indication: INFUSION RELATED REACTION
     Route: 065
     Dates: start: 20151125
  10. KW-0761 [Suspect]
     Active Substance: MOGAMULIZUMAB
     Indication: SARCOMA METASTATIC
     Route: 042
     Dates: start: 20151223, end: 20160518
  11. PROTONIX [Concomitant]
     Active Substance: PANTOPRAZOLE SODIUM
     Indication: DYSPEPSIA
     Route: 065
     Dates: start: 2015
  12. PROMETHAZINE W/CODEINE [Concomitant]
     Active Substance: CODEINE\PROMETHAZINE
     Indication: COUGH
     Route: 065
     Dates: start: 201511

REACTIONS (2)
  - Stomatitis [Recovered/Resolved]
  - Limb discomfort [Recovered/Resolved]

NARRATIVE: CASE EVENT DATE: 20160425
